FAERS Safety Report 22640663 (Version 1)
Quarter: 2023Q2

REPORT INFORMATION
  Report Type: Report from Study
  Country: CA (occurrence: CA)
  Receive Date: 20230626
  Receipt Date: 20230626
  Transmission Date: 20230721
  Serious: Yes (Life-Threatening, Hospitalization, Other)
  Sender: FDA-Public Use
  Company Number: None

PATIENT
  Age: 61 Year
  Sex: Female

DRUGS (4)
  1. METHOTREXATE [Suspect]
     Active Substance: METHOTREXATE
     Indication: Spondyloarthropathy
     Dosage: 1 EVERY 1 WEEKS
     Route: 048
  2. ADALIMUMAB [Suspect]
     Active Substance: ADALIMUMAB
     Indication: Spondyloarthropathy
     Dosage: SOLUTION SUBCUTANEOUS
     Route: 058
  3. DOXYCYCLINE [Concomitant]
     Active Substance: DOXYCYCLINE
     Indication: Product used for unknown indication
     Dosage: 1 EVERY 1 DAYS
     Route: 065
  4. ADALIMUMAB [Suspect]
     Active Substance: ADALIMUMAB
     Indication: Spondyloarthropathy
     Dosage: SOLUTION FOR INJECTION
     Route: 058

REACTIONS (10)
  - Acute respiratory distress syndrome [Recovered/Resolved]
  - Fungal infection [Recovered/Resolved]
  - Ill-defined disorder [Recovered/Resolved]
  - Immune system disorder [Recovered/Resolved]
  - Pneumonia legionella [Recovered/Resolved]
  - Pneumothorax [Recovered/Resolved]
  - Rash [Recovered/Resolved]
  - Respiratory failure [Recovered/Resolved]
  - Sepsis [Recovered/Resolved]
  - Vasculitis [Recovered/Resolved]
